FAERS Safety Report 7449021-5 (Version None)
Quarter: 2011Q2

REPORT INFORMATION
  Report Type: 
  Country: None (occurrence: None)
  Receive Date: 20110429
  Receipt Date: 20090519
  Transmission Date: 20111010
  Serious: Yes (Hospitalization, Other)
  Sender: FDA-Public Use
  Company Number: DE-GENENTECH-317707

PATIENT
  Age: 88 Year
  Sex: Female

DRUGS (1)
  1. LUCENTIS [Suspect]
     Indication: MACULAR DEGENERATION
     Route: 031

REACTIONS (16)
  - EYE DISORDER [None]
  - VISION BLURRED [None]
  - BLOOD PRESSURE ABNORMAL [None]
  - INJECTION SITE INJURY [None]
  - DRY EYE [None]
  - HYPERTENSION [None]
  - OCULAR HYPERAEMIA [None]
  - MALAISE [None]
  - BACK DISORDER [None]
  - BACK PAIN [None]
  - RETINAL TEAR [None]
  - GAIT DISTURBANCE [None]
  - VISUAL ACUITY REDUCED [None]
  - VISUAL IMPAIRMENT [None]
  - NASOPHARYNGITIS [None]
  - WRONG TECHNIQUE IN DRUG USAGE PROCESS [None]
